FAERS Safety Report 7506621-1 (Version None)
Quarter: 2011Q2

REPORT INFORMATION
  Report Type: 
  Country: None (occurrence: None)
  Receive Date: 20110526
  Receipt Date: 20110517
  Transmission Date: 20111010
  Serious: Yes (Hospitalization)
  Sender: FDA-Public Use
  Company Number: US-ASTRAZENECA-2011SE09468

PATIENT
  Age: 28 Year
  Sex: Female
  Weight: 83.5 kg

DRUGS (8)
  1. MULTI-VITAMINS [Concomitant]
     Dosage: DAILY
     Route: 048
  2. CELEXA [Concomitant]
     Indication: BIPOLAR DISORDER
     Route: 048
  3. TRAZODONE HCL [Concomitant]
     Indication: BIPOLAR DISORDER
  4. OXYCODONE/ACETAMINOPHEN [Concomitant]
     Indication: PAIN
     Dosage: 5-325 MG, 1-2 TABEVERY 4-6 HOURS AS NEEDED
     Route: 048
  5. SEROQUEL [Suspect]
     Indication: DEPRESSION
     Route: 048
     Dates: start: 20090101
  6. ZYPREXA [Concomitant]
     Route: 048
  7. SEASONALE [Concomitant]
     Dosage: 0.15-0.03 MG
     Route: 048
  8. SEROQUEL [Suspect]
     Indication: BIPOLAR DISORDER
     Route: 048
     Dates: start: 20090101

REACTIONS (6)
  - DEPRESSION [None]
  - FEMUR FRACTURE [None]
  - ANXIETY [None]
  - ROAD TRAFFIC ACCIDENT [None]
  - LOWER LIMB FRACTURE [None]
  - DRUG INEFFECTIVE [None]
